FAERS Safety Report 8181534-3 (Version None)
Quarter: 2012Q1

REPORT INFORMATION
  Report Type: 
  Country: None (occurrence: None)
  Receive Date: 20120302
  Receipt Date: 20120222
  Transmission Date: 20120608
  Serious: Yes (Other)
  Sender: FDA-Public Use
  Company Number: RU-ASTRAZENECA-2012SE13166

PATIENT
  Sex: Female

DRUGS (1)
  1. NAROPIN [Suspect]
     Route: 008

REACTIONS (3)
  - BONE PAIN [None]
  - URINARY INCONTINENCE [None]
  - MUSCULAR WEAKNESS [None]
